FAERS Safety Report 5074747-0 (Version None)
Quarter: 2006Q3

REPORT INFORMATION
  Report Type: 
  Country: None (occurrence: None)
  Receive Date: 20060807
  Receipt Date: 20060726
  Transmission Date: 20061208
  Serious: Yes (Hospitalization)
  Sender: FDA-Public Use
  Company Number: DEU-2006-0002275

PATIENT
  Age: 62 Year
  Sex: Female
  Weight: 61.0088 kg

DRUGS (2)
  1. OXY CR TAB 10MG (OXY CR TAB 10 MG)OXYCODONE HYDROCHLORIDE) [Suspect]
     Indication: PAIN
     Dosage: ORAL
     Route: 048
  2. MORPHINE SULFATE [Concomitant]

REACTIONS (1)
  - EPISTAXIS [None]
